FAERS Safety Report 8489751-X (Version None)
Quarter: 2012Q3

REPORT INFORMATION
  Report Type: 
  Country: None (occurrence: None)
  Receive Date: 20120705
  Receipt Date: 20120626
  Transmission Date: 20120928
  Serious: Yes (Other)
  Sender: FDA-Public Use
  Company Number: DE-GLAXOSMITHKLINE-D0075562A

PATIENT
  Sex: Male

DRUGS (1)
  1. ATMADISC MITE [Suspect]
     Dosage: 1PUFF TWICE PER DAY
     Route: 055

REACTIONS (3)
  - RESUSCITATION [None]
  - VENTRICULAR FIBRILLATION [None]
  - ATRIAL FIBRILLATION [None]
